FAERS Safety Report 6744146-1 (Version None)
Quarter: 2010Q2

REPORT INFORMATION
  Report Type: 
  Country: None (occurrence: None)
  Receive Date: 20100527
  Receipt Date: 20100517
  Transmission Date: 20101027
  Serious: Yes (Disabling)
  Sender: FDA-Public Use
  Company Number: D0067289A

PATIENT
  Sex: Female

DRUGS (1)
  1. LAMOTRIGINE (RATIOPHARM) [Suspect]
     Indication: EPILEPSY
     Dosage: 100MG PER DAY
     Route: 048

REACTIONS (2)
  - VISION BLURRED [None]
  - VISUAL ACUITY REDUCED [None]
